FAERS Safety Report 5708547-2 (Version None)
Quarter: 2008Q2

REPORT INFORMATION
  Report Type: 
  Country: None (occurrence: None)
  Receive Date: 20080417
  Receipt Date: 20080408
  Transmission Date: 20081010
  Serious: Yes (Hospitalization, Other)
  Sender: FDA-Public Use
  Company Number: PHRM2008FR01255

PATIENT
  Age: 13 Year
  Sex: Female

DRUGS (8)
  1. NISISCO [Suspect]
     Route: 048
  2. SOTALOL HCL [Suspect]
     Route: 048
  3. HEPT-A-MYL [Concomitant]
     Route: 048
  4. EUPHYTOSE [Concomitant]
     Route: 048
  5. EFFERALGAN [Concomitant]
     Route: 048
  6. SERESTA [Suspect]
     Route: 048
  7. DEROXAT [Suspect]
     Route: 048
  8. NOCTAMID [Suspect]
     Route: 048

REACTIONS (10)
  - ASTHENIA [None]
  - DIZZINESS [None]
  - FATIGUE [None]
  - HYPERHIDROSIS [None]
  - INTENTIONAL DRUG MISUSE [None]
  - LOSS OF CONSCIOUSNESS [None]
  - MALAISE [None]
  - RENIN DECREASED [None]
  - SLEEP DISORDER [None]
  - TREMOR [None]
